FAERS Safety Report 5032868-2 (Version None)
Quarter: 2006Q2

REPORT INFORMATION
  Report Type: 
  Country: None (occurrence: None)
  Receive Date: 20060428
  Receipt Date: 20051026
  Transmission Date: 20061013
  Serious: Yes (Other)
  Sender: FDA-Public Use
  Company Number: 200511900BBE

PATIENT
  Age: 52 Year
  Sex: Female

DRUGS (7)
  1. GAMUNEX [Suspect]
     Indication: MULTIPLE MYELOMA
     Dosage: 35 G, TOTAL DAILY, INTRAVENOUS
     Route: 042
     Dates: start: 20050311, end: 20050315
  2. TACROLIMUS [Concomitant]
  3. MYCOPHENOLATE MOFETIL [Concomitant]
  4. STEROIDS [Concomitant]
  5. LEVOFLOXACIN [Concomitant]
  6. GANCICLOVIR [Concomitant]
  7. RBC TRANSFUSION [Concomitant]

REACTIONS (1)
  - HAEMOLYSIS [None]
